FAERS Safety Report 14623330 (Version 1)
Quarter: 2018Q1

REPORT INFORMATION
  Report Type: Report from Study
  Country: CO (occurrence: CO)
  Receive Date: 20180312
  Receipt Date: 20180312
  Transmission Date: 20180509
  Serious: Yes (Death, Other)
  Sender: FDA-Public Use
  Company Number: CO-AMGEN-COLSL2018032805

PATIENT
  Age: 89 Year
  Sex: Male

DRUGS (1)
  1. PROLIA [Suspect]
     Active Substance: DENOSUMAB
     Indication: OSTEOPOROSIS POSTMENOPAUSAL
     Dosage: 60 MG, Q6MO
     Route: 058
     Dates: start: 20171018, end: 20171018

REACTIONS (5)
  - Death [Fatal]
  - Weight decreased [Unknown]
  - Gait disturbance [Unknown]
  - Back pain [Unknown]
  - Nephropathy [Unknown]

NARRATIVE: CASE EVENT DATE: 20180301
